FAERS Safety Report 6205863-5 (Version None)
Quarter: 2009Q2

REPORT INFORMATION
  Report Type: 
  Country: None (occurrence: None)
  Receive Date: 20090527
  Receipt Date: 20090505
  Transmission Date: 20091009
  Serious: No
  Sender: FDA-Public Use
  Company Number: US-ABBOTT-09P-163-0571492-00

PATIENT
  Sex: Female

DRUGS (12)
  1. SIMCOR [Suspect]
     Indication: HIGH DENSITY LIPOPROTEIN DECREASED
     Dosage: 500/20MG
     Dates: start: 20090504, end: 20090504
  2. ASPIRIN [Concomitant]
     Route: 048
  3. LOTRADINE [Concomitant]
     Route: 048
  4. BISOPROLOL [Concomitant]
     Route: 048
  5. EXFORGE [Concomitant]
     Route: 048
  6. OMEGA RED [Concomitant]
     Route: 048
  7. ZINC [Concomitant]
     Route: 048
  8. CALCIUM [Concomitant]
     Route: 048
  9. VITAMIN D [Concomitant]
     Route: 048
  10. VITAMIN E [Concomitant]
     Route: 048
  11. MULTI-VITAMIN [Concomitant]
     Route: 048
  12. GINKGO BILOBA [Concomitant]
     Route: 048

REACTIONS (6)
  - BURNING SENSATION [None]
  - ERYTHEMA [None]
  - FEELING HOT [None]
  - PAIN [None]
  - PRURITUS [None]
  - SENSORY DISTURBANCE [None]
